FAERS Safety Report 16646604 (Version 2)
Quarter: 2019Q3

REPORT INFORMATION
  Report Type: Spontaneous
  Country: BG (occurrence: BG)
  Receive Date: 20190730
  Receipt Date: 20190923
  Transmission Date: 20191004
  Serious: Yes (Other)
  Sender: FDA-Public Use
  Company Number: BG-ACCORD-149569

PATIENT
  Age: 22 Year
  Sex: Female

DRUGS (3)
  1. TOPIRAMATE. [Suspect]
     Active Substance: TOPIRAMATE
     Indication: GENERALISED TONIC-CLONIC SEIZURE
     Dosage: 300 MG
     Route: 048
  2. VALPROIC ACID. [Suspect]
     Active Substance: VALPROIC ACID
     Indication: SIMPLE PARTIAL SEIZURES
     Dosage: 1500 MG
  3. LEVETIRACETAM. [Suspect]
     Active Substance: LEVETIRACETAM
     Indication: GENERALISED TONIC-CLONIC SEIZURE
     Dosage: 2000 MG
     Route: 065

REACTIONS (4)
  - Condition aggravated [Unknown]
  - Partial seizures [Unknown]
  - Seizure [Unknown]
  - Paradoxical drug reaction [Unknown]
